FAERS Safety Report 10031897 (Version 1)
Quarter: 2014Q1

REPORT INFORMATION
  Report Type: Spontaneous
  Country: HR (occurrence: HR)
  Receive Date: 20140324
  Receipt Date: 20140324
  Transmission Date: 20141002
  Serious: Yes (Other)
  Sender: FDA-Public Use
  Company Number: HR-BAYER-2014-040560

PATIENT
  Age: 37 Year
  Sex: Female
  Weight: 70 kg

DRUGS (1)
  1. QLAIRA FILM COATED TABLETS [Suspect]
     Dosage: 1 DF, QD
     Route: 048
     Dates: start: 20131009, end: 20140226

REACTIONS (3)
  - Abortion missed [None]
  - Pregnancy on oral contraceptive [None]
  - Drug ineffective [None]
